FAERS Safety Report 8545668-3 (Version None)
Quarter: 2012Q3

REPORT INFORMATION
  Report Type: 
  Country: None (occurrence: None)
  Receive Date: 20120727
  Receipt Date: 20120724
  Transmission Date: 20120928
  Serious: Yes (Other)
  Sender: FDA-Public Use
  Company Number: JP-009507513-1207JPN008720

PATIENT

DRUGS (10)
  1. EPADEL S [Concomitant]
     Indication: HYPERLIPIDAEMIA
     Route: 048
  2. TELAVIC [Suspect]
     Indication: HEPATITIS C
     Route: 048
     Dates: start: 20120509
  3. CLARITIN REDITABS [Concomitant]
     Indication: PROPHYLAXIS
     Route: 048
  4. LIVALO [Concomitant]
     Indication: HYPERLIPIDAEMIA
     Route: 048
  5. FEROTYM [Concomitant]
     Indication: IRON DEFICIENCY ANAEMIA
     Route: 048
  6. SEFTAC [Concomitant]
     Indication: GASTRITIS
     Route: 048
  7. REBETOL [Suspect]
     Route: 048
     Dates: start: 20120604
  8. PEG-INTRON [Suspect]
     Indication: HEPATITIS C
     Dosage: 1.5MCG/KG/WEEK
     Route: 058
     Dates: start: 20120509
  9. REBETOL [Suspect]
     Route: 048
     Dates: start: 20120528, end: 20120603
  10. REBETOL [Suspect]
     Indication: HEPATITIS C
     Route: 048
     Dates: start: 20120509, end: 20120527

REACTIONS (1)
  - ANAEMIA [None]
